FAERS Safety Report 19617892 (Version 1)
Quarter: 2021Q3

REPORT INFORMATION
  Report Type: Report from Study
  Country: US (occurrence: US)
  Receive Date: 20210727
  Receipt Date: 20210727
  Transmission Date: 20211014
  Serious: Yes (Hospitalization, Other)
  Sender: FDA-Public Use
  Company Number: US-BRISTOL-MYERS SQUIBB COMPANY-BMS-2021-071042

PATIENT
  Age: 76 Year
  Sex: Male
  Weight: 68.04 kg

DRUGS (1)
  1. APIXABAN [Suspect]
     Active Substance: APIXABAN
     Indication: CEREBROVASCULAR ACCIDENT PROPHYLAXIS
     Dosage: 5 MILLIGRAM, BID
     Route: 048
     Dates: start: 2018

REACTIONS (8)
  - Arthropathy [Unknown]
  - Drug ineffective [Unknown]
  - Drug resistance [Unknown]
  - Hypoacusis [Unknown]
  - Suspected product quality issue [Unknown]
  - Thrombosis [Unknown]
  - Pneumonia [Unknown]
  - Body height decreased [Unknown]

NARRATIVE: CASE EVENT DATE: 20210708
